FAERS Safety Report 4766207-9 (Version None)
Quarter: 2005Q3

REPORT INFORMATION
  Report Type: 
  Country: None (occurrence: None)
  Receive Date: 20050909
  Receipt Date: 20050825
  Transmission Date: 20060218
  Serious: Yes (Hospitalization)
  Sender: FDA-Public Use
  Company Number: B0324341A

PATIENT
  Sex: Female

DRUGS (1)
  1. PAXIL [Suspect]
     Dosage: TRANSPLACENTARY
     Route: 064

REACTIONS (14)
  - BLOOD LACTIC ACID INCREASED [None]
  - BLOOD PH DECREASED [None]
  - BRADYCARDIA NEONATAL [None]
  - CARBON DIOXIDE INCREASED [None]
  - CLONUS [None]
  - CONVULSION NEONATAL [None]
  - CYANOSIS NEONATAL [None]
  - DRUG EXPOSURE DURING PREGNANCY [None]
  - DRUG WITHDRAWAL SYNDROME NEONATAL [None]
  - ELECTROENCEPHALOGRAM ABNORMAL [None]
  - HYPERTONIA NEONATAL [None]
  - HYPOPNOEA [None]
  - HYPOTONIA NEONATAL [None]
  - NEONATAL DISORDER [None]
